FAERS Safety Report 5361216-3 (Version None)
Quarter: 2007Q2

REPORT INFORMATION
  Report Type: 
  Country: None (occurrence: None)
  Receive Date: 20070614
  Receipt Date: 20070601
  Transmission Date: 20071010
  Serious: Yes (Death)
  Sender: FDA-Public Use
  Company Number: FABR-12018

PATIENT
  Age: 71 Year
  Sex: Male
  Weight: 70 kg

DRUGS (13)
  1. FABRAZYME [Suspect]
     Indication: FABRY'S DISEASE
     Dosage: 70 MG/KG IV
     Route: 042
     Dates: start: 20070119, end: 20070403
  2. NOVOMIX [Concomitant]
  3. VALSARTAN [Concomitant]
  4. RANITIDINE [Concomitant]
  5. EZETIMIBE [Concomitant]
  6. ATORVASTATIN [Concomitant]
  7. FLIXOTIDE INHALER [Concomitant]
  8. FLIXONASE [Concomitant]
  9. SALBUTAMOL [Concomitant]
  10. IPRATROPIUM BROMIDE [Concomitant]
  11. NICORANDIL [Concomitant]
  12. CODEINE PHOSPHATE AND ACETAMINOPHEN [Concomitant]
  13. ASPIRIN [Concomitant]

REACTIONS (3)
  - CHRONIC RESPIRATORY DISEASE [None]
  - FALL [None]
  - INFECTIVE EXACERBATION OF CHRONIC OBSTRUCTIVE AIRWAYS DISEASE [None]
